FAERS Safety Report 9410779 (Version 2)
Quarter: 2013Q3

REPORT INFORMATION
  Report Type: Report from Study
  Country: US (occurrence: US)
  Receive Date: 20130719
  Receipt Date: 20130812
  Transmission Date: 20140515
  Serious: Yes (Hospitalization)
  Sender: FDA-Public Use
  Company Number: US-US-EMD SERONO, INC.-7224468

PATIENT
  Age: 71 Year
  Sex: Male
  Weight: 100 kg

DRUGS (2)
  1. REBIF [Suspect]
     Indication: MULTIPLE SCLEROSIS
     Route: 058
     Dates: start: 20080616, end: 201306
  2. METOPROLOL [Concomitant]
     Indication: HYPERTENSION

REACTIONS (4)
  - Myocardial infarction [Recovered/Resolved]
  - Meningitis bacterial [Recovered/Resolved]
  - Trigeminal neuralgia [Recovering/Resolving]
  - Post procedural haemorrhage [Recovered/Resolved]
